FAERS Safety Report 24004460 (Version 2)
Quarter: 2024Q3

REPORT INFORMATION
  Report Type: Spontaneous
  Country: DE (occurrence: DE)
  Receive Date: 20240624
  Receipt Date: 20240821
  Transmission Date: 20241017
  Serious: Yes (Other)
  Sender: BRISTOL MYERS SQUIBB
  Company Number: DE-BRISTOL-MYERS SQUIBB COMPANY-2024-096933

PATIENT
  Age: 29 Year
  Sex: Female

DRUGS (1)
  1. REVLIMID [Suspect]
     Active Substance: LENALIDOMIDE
     Indication: Product used for unknown indication
     Dosage: HARD CAPSULES
     Route: 050
     Dates: start: 20180801

REACTIONS (3)
  - Exposure via body fluid [Unknown]
  - Unintended pregnancy [Unknown]
  - Pregnancy with contraceptive device [Unknown]
